FAERS Safety Report 10659240 (Version 5)
Quarter: 2015Q2

REPORT INFORMATION
  Report Type: Spontaneous
  Country: US (occurrence: US)
  Receive Date: 20141217
  Receipt Date: 20150402
  Transmission Date: 20150821
  Serious: Yes (Disabling)
  Sender: FDA-Public Use
  Company Number: US-009507513-1204USA04458

PATIENT
  Sex: Male

DRUGS (4)
  1. PROSCAR [Suspect]
     Active Substance: FINASTERIDE
     Indication: ALOPECIA
     Dosage: 1.25-0.5 MG, QD
     Route: 048
     Dates: start: 20110419
  2. PROPECIA [Suspect]
     Active Substance: FINASTERIDE
     Indication: ALOPECIA
     Dosage: 1 MG, UNK
     Route: 048
     Dates: start: 2006, end: 201110
  3. FINASTERIDE. [Suspect]
     Active Substance: FINASTERIDE
     Indication: ALOPECIA
     Dosage: 5 MG, QD
     Route: 048
     Dates: start: 20101223, end: 20110522
  4. PROSCAR [Suspect]
     Active Substance: FINASTERIDE
     Indication: URINE FLOW DECREASED

REACTIONS (21)
  - Wrong technique in drug usage process [Unknown]
  - Drug administration error [Unknown]
  - Muscle atrophy [Unknown]
  - Wound infection staphylococcal [Unknown]
  - Weight decreased [Unknown]
  - Dyslipidaemia [Unknown]
  - Alopecia [Unknown]
  - Depression [Not Recovered/Not Resolved]
  - Ejaculation disorder [Not Recovered/Not Resolved]
  - Libido decreased [Not Recovered/Not Resolved]
  - Otitis media [Unknown]
  - Anxiety disorder [Not Recovered/Not Resolved]
  - Sexual dysfunction [Not Recovered/Not Resolved]
  - Ejaculation failure [Not Recovered/Not Resolved]
  - Fatigue [Unknown]
  - Malaise [Unknown]
  - Metabolic disorder [Unknown]
  - Cognitive disorder [Not Recovered/Not Resolved]
  - Erectile dysfunction [Not Recovered/Not Resolved]
  - Benign prostatic hyperplasia [Unknown]
  - Acute sinusitis [Unknown]

NARRATIVE: CASE EVENT DATE: 20090421
